FAERS Safety Report 9225079 (Version 4)
Quarter: 2013Q2

REPORT INFORMATION
  Report Type: Spontaneous
  Country: US (occurrence: US)
  Receive Date: 20130411
  Receipt Date: 20130606
  Transmission Date: 20140414
  Serious: Yes (Other)
  Sender: FDA-Public Use
  Company Number: US-JNJFOC-20130403148

PATIENT
  Age: 66 Year
  Sex: Male
  Weight: 72 kg

DRUGS (3)
  1. IBUPROFEN [Suspect]
     Indication: PRODUCT USED FOR UNKNOWN INDICATION
     Dosage: 800 MG AS NEEDED ALMOST EVERY 4 HOURS
     Route: 065
     Dates: start: 20130209, end: 201302
  2. DEPO-TESTOSTERONE [Suspect]
     Indication: BLOOD TESTOSTERONE DECREASED
     Route: 065
     Dates: start: 201209, end: 201303
  3. DOXAZOSIN MESILATE [Suspect]
     Indication: URINARY RETENTION
     Route: 065
     Dates: start: 2013

REACTIONS (14)
  - Hepatic failure [Unknown]
  - Dyspnoea [Unknown]
  - Bile duct stenosis [Unknown]
  - Hepatic lesion [Unknown]
  - Bile duct adenocarcinoma [Unknown]
  - Urinary retention [Unknown]
  - Cough [Unknown]
  - Eye colour change [Unknown]
  - Skin discolouration [Unknown]
  - Fatigue [Unknown]
  - Blood triglycerides increased [Unknown]
  - Blood cholesterol increased [Unknown]
  - Rash [Unknown]
  - Skin exfoliation [Unknown]
